FAERS Safety Report 14339801 (Version 1)
Quarter: 2017Q4

REPORT INFORMATION
  Report Type: Spontaneous
  Country: FR (occurrence: FR)
  Receive Date: 20171230
  Receipt Date: 20171230
  Transmission Date: 20180321
  Serious: Yes (Other)
  Sender: FDA-Public Use
  Company Number: FR-MYLANLABS-2017M1082886

PATIENT
  Age: 31 Year
  Sex: Female
  Weight: 78 kg

DRUGS (4)
  1. STELARA [Suspect]
     Active Substance: USTEKINUMAB
     Indication: PSORIATIC ARTHROPATHY
     Dosage: 45 MG, Q3W
     Route: 058
     Dates: start: 201607
  2. NAPROXEN. [Suspect]
     Active Substance: NAPROXEN
     Indication: PSORIATIC ARTHROPATHY
     Dosage: 550 MG, BID
     Dates: start: 201611
  3. TRAMADOL. [Suspect]
     Active Substance: TRAMADOL
     Indication: PSORIATIC ARTHROPATHY
     Dosage: UNK
     Route: 048
     Dates: start: 201607
  4. STELARA [Suspect]
     Active Substance: USTEKINUMAB
     Dosage: 45 MG, Q3W
     Route: 058
     Dates: start: 201702

REACTIONS (5)
  - Inappropriate schedule of drug administration [Unknown]
  - Pregnancy [Recovered/Resolved with Sequelae]
  - Exposure during pregnancy [Recovered/Resolved with Sequelae]
  - Off label use [Unknown]
  - Device ineffective [Recovered/Resolved with Sequelae]

NARRATIVE: CASE EVENT DATE: 201607
